FAERS Safety Report 4347805-3 (Version None)
Quarter: 2004Q2

REPORT INFORMATION
  Report Type: 
  Country: None (occurrence: None)
  Receive Date: 20040426
  Receipt Date: 20040421
  Transmission Date: 20050107
  Serious: Yes (Other)
  Sender: FDA-Public Use
  Company Number: 04-02-0246

PATIENT
  Age: 70 Year
  Sex: Female
  Weight: 49.8957 kg

DRUGS (1)
  1. CLOZAPINE [Suspect]
     Indication: PSYCHOTIC DISORDER
     Dosage: 25 QHS ORAL
     Route: 048
     Dates: start: 20011101, end: 20040212

REACTIONS (1)
  - PANCYTOPENIA [None]
